FAERS Safety Report 8552737-0 (Version None)
Quarter: 2012Q3

REPORT INFORMATION
  Report Type: 
  Country: None (occurrence: None)
  Receive Date: 20120731
  Receipt Date: 20120725
  Transmission Date: 20120928
  Serious: Yes (Other)
  Sender: FDA-Public Use
  Company Number: PHEH2012US012176

PATIENT
  Sex: Female

DRUGS (33)
  1. ZANAFLEX [Concomitant]
     Dosage: 4 MG,
  2. ZOFRAN [Concomitant]
     Dosage: 4 MG
  3. MULTAQ [Concomitant]
     Dosage: 400 MG,
  4. IMITREX [Concomitant]
     Dosage: 100 MG,
  5. MAGNESIUM SULFATE [Concomitant]
     Dosage: 400 MG,
     Route: 048
  6. RESTASIS [Concomitant]
     Dosage: 0.05 MG,
  7. CALCIUM [Concomitant]
  8. LIDEX [Concomitant]
  9. VIVELLE-DOT [Suspect]
     Indication: MENOPAUSE
     Dosage: 0.1 MG, BIW
     Route: 062
     Dates: end: 20120702
  10. VENTILAN [Concomitant]
  11. XANAX [Concomitant]
     Dosage: 1 MG
     Route: 048
  12. VITAMIN E [Concomitant]
     Dosage: 1000 IU
  13. BRIMONIDINE TARTRATE [Concomitant]
     Dosage: 1 DROP EACH EYE PER DAY
  14. VITAMIN D [Concomitant]
     Dosage: 500 IU,
  15. DEXILANT [Concomitant]
     Dosage: 60 MG,
  16. ALBUTEROL [Concomitant]
     Dosage: 0.06 %,
  17. IPRATROPIUM BROMIDE [Concomitant]
     Dosage: 0.02 %,
  18. FIORICET [Concomitant]
     Route: 048
  19. LYDEXCIUM [Concomitant]
  20. CALCIUM CARBONATE [Concomitant]
     Dosage: 500 MG,
     Route: 048
  21. POTASSIUM FLOURIDE [Concomitant]
     Dosage: 750 MG,
  22. NORCO [Concomitant]
  23. VITAMIN D [Concomitant]
     Dosage: 1000 IU,
  24. XOPENEX [Concomitant]
  25. POTASSIUM CHLORIDE [Concomitant]
  26. EPIPEN [Concomitant]
     Dosage: 0.3 MG,
  27. MULTIVITAMINS, OTHER COMBINATIONS [Concomitant]
  28. ASCORBIC ACID [Concomitant]
     Dosage: 1000 MG,
  29. CINNAMON [Concomitant]
     Dosage: 500 MG,
  30. ZINC SULFATE [Concomitant]
     Dosage: CHELATED ZINC 15 MG
  31. SUSTAINED EYE DROP (NO PRESERVATIVES) [Concomitant]
  32. VALIUM [Concomitant]
     Dosage: 10 MG,
     Route: 048
  33. NITROSTAT [Concomitant]
     Dosage: 0.4 MG,

REACTIONS (7)
  - PRURITUS [None]
  - FEELING HOT [None]
  - URINE CALCIUM INCREASED [None]
  - GLAUCOMA [None]
  - SKIN BURNING SENSATION [None]
  - RASH [None]
  - ERYTHEMA [None]
